FAERS Safety Report 15861478 (Version 1)
Quarter: 2018Q4

REPORT INFORMATION
  Report Type: Spontaneous
  Country: US (occurrence: US)
  Receive Date: 20181228
  Receipt Date: 20181228
  Transmission Date: 20190205
  Serious: Yes (Hospitalization)
  Sender: FDA-Public Use
  Company Number: None

PATIENT
  Age: 65 Year
  Sex: Male
  Weight: 152 kg

DRUGS (1)
  1. SULFAMETHOXAZOLE/TRIMETHOPRIM [Suspect]
     Active Substance: SULFAMETHOXAZOLE\TRIMETHOPRIM
     Indication: SELF-MEDICATION
     Route: 048
     Dates: start: 20181011, end: 20181011

REACTIONS (14)
  - Oral disorder [None]
  - Penile discharge [None]
  - Stomatitis [None]
  - Skin warm [None]
  - Dysuria [None]
  - Dermatitis exfoliative generalised [None]
  - Pruritus [None]
  - Tenderness [None]
  - Vision blurred [None]
  - Rash [None]
  - Periorbital swelling [None]
  - Haemorrhage [None]
  - Tachycardia [None]
  - Erythema multiforme [None]

NARRATIVE: CASE EVENT DATE: 20181012
